FAERS Safety Report 16981621 (Version 1)
Quarter: 2019Q4

REPORT INFORMATION
  Report Type: Spontaneous
  Country: FR (occurrence: FR)
  Receive Date: 20191101
  Receipt Date: 20191101
  Transmission Date: 20200122
  Serious: Yes (Hospitalization, Other)
  Sender: FDA-Public Use
  Company Number: FR-BRISTOL-MYERS SQUIBB COMPANY-BMS-2019-101693

PATIENT
  Age: 61 Year
  Sex: Male
  Weight: 70 kg

DRUGS (4)
  1. TAHOR [Interacting]
     Active Substance: ATORVASTATIN CALCIUM
     Indication: DYSLIPIDAEMIA
     Dosage: 1 DOSAGE FORM
     Route: 048
     Dates: end: 20190929
  2. LEVOTHYROX [Suspect]
     Active Substance: LEVOTHYROXINE
     Indication: HYPOTHYROIDISM
     Dosage: 1 DOSAGE FORM PER DAY
     Route: 048
  3. NIVOLUMAB [Suspect]
     Active Substance: NIVOLUMAB
     Indication: SQUAMOUS CELL CARCINOMA OF THE TONGUE
     Dosage: UNK
     Route: 041
     Dates: start: 20181109, end: 20190919
  4. CLOTIAZEPAM [Suspect]
     Active Substance: CLOTIAZEPAM
     Indication: PRODUCT USED FOR UNKNOWN INDICATION
     Dosage: 10 MILLIGRAM PER DAY
     Route: 048
     Dates: end: 20190929

REACTIONS (2)
  - Diabetic ketoacidosis [Recovered/Resolved]
  - Diabetes mellitus [Not Recovered/Not Resolved]

NARRATIVE: CASE EVENT DATE: 201909
